FAERS Safety Report 21142225 (Version 1)
Quarter: 2022Q3

REPORT INFORMATION
  Report Type: Spontaneous
  Country: US (occurrence: None)
  Receive Date: 20220728
  Receipt Date: 20220728
  Transmission Date: 20221026
  Serious: Yes (Hospitalization)
  Sender: FDA-Public Use
  Company Number: None

PATIENT
  Sex: Male

DRUGS (12)
  1. ACTEMRA [Suspect]
     Active Substance: TOCILIZUMAB
     Indication: Giant cell arteritis
     Dosage: OTHER QUANTITY : 162 MG/0.9ML;?FREQUENCY : WEEKLY;?
     Route: 058
     Dates: start: 20211228
  2. ACTEMRA [Suspect]
     Active Substance: TOCILIZUMAB
     Dosage: OTHER QUANTITY : 1 SYRINGE;?FREQUENCY : WEEKLY;?
     Route: 058
  3. ALBUTEROL [Concomitant]
     Active Substance: ALBUTEROL
  4. BUDES/FORMOT [Concomitant]
  5. FLUOXETINE [Concomitant]
     Active Substance: FLUOXETINE HYDROCHLORIDE
  6. ACETAMINOPHEN\HYDROCODONE [Concomitant]
     Active Substance: ACETAMINOPHEN\HYDROCODONE
  7. IPRATROPIUM/SOL ALBUTER [Concomitant]
  8. LATUDA [Concomitant]
     Active Substance: LURASIDONE HYDROCHLORIDE
  9. METFORMIN [Concomitant]
  10. MONTELUKAST SODIUM [Concomitant]
     Active Substance: MONTELUKAST SODIUM
  11. PANTOPRAZOLE [Concomitant]
     Active Substance: PANTOPRAZOLE
  12. POTASSIUM CHLORIDE [Concomitant]
     Active Substance: POTASSIUM CHLORIDE

REACTIONS (2)
  - COVID-19 [None]
  - Injection site erythema [None]
